FAERS Safety Report 9421275 (Version 1)
Quarter: 2013Q3

REPORT INFORMATION
  Report Type: Spontaneous
  Country: DK (occurrence: DK)
  Receive Date: 20130725
  Receipt Date: 20130725
  Transmission Date: 20140515
  Serious: Yes (Other)
  Sender: FDA-Public Use
  Company Number: DK-WATSON-2013-13016

PATIENT
  Age: 59 Year
  Sex: Female

DRUGS (1)
  1. TOPIRAMATE (UNKNOWN) [Suspect]
     Indication: MIGRAINE
     Dosage: 200 MG, BID
     Route: 065
     Dates: start: 20121010, end: 20130310

REACTIONS (3)
  - Restlessness [Recovered/Resolved]
  - Pruritus [Recovered/Resolved]
  - Product substitution issue [Recovered/Resolved]
